FAERS Safety Report 8848962 (Version 1)
Quarter: 2012Q4

REPORT INFORMATION
  Report Type: Spontaneous
  Country: CL (occurrence: None)
  Receive Date: 20121016
  Receipt Date: 20121016
  Transmission Date: 20130627
  Serious: Yes (Hospitalization)
  Sender: FDA-Public Use
  Company Number: MPS1-1000796

PATIENT
  Age: 5 Year
  Sex: Female
  Weight: 14 kg

DRUGS (1)
  1. ALDURAZYME [Suspect]
     Indication: MUCOPOLYSACCHARIDOSIS
     Route: 042
     Dates: start: 20090623, end: 20120922

REACTIONS (5)
  - Mitral valve incompetence [None]
  - Diastolic dysfunction [None]
  - Pneumonia [None]
  - Hypoxia [None]
  - Laryngitis [None]
